FAERS Safety Report 8054646-2 (Version None)
Quarter: 2012Q1

REPORT INFORMATION
  Report Type: 
  Country: None (occurrence: None)
  Receive Date: 20120111
  Receipt Date: 20120106
  Transmission Date: 20120608
  Serious: Yes (Other)
  Sender: FDA-Public Use
  Company Number: USA/USA/12/0022574

PATIENT
  Age: 43 Year
  Sex: Female
  Weight: 89.8122 kg

DRUGS (3)
  1. NYSTATIN [Concomitant]
  2. CIPROFLOXACIN [Suspect]
     Indication: BACTERIAL INFECTION
     Dosage: 500 MG, 1 ONCE, ORAL
     Route: 048
     Dates: start: 20120106
  3. SPIRONOLACTONE [Concomitant]

REACTIONS (8)
  - READING DISORDER [None]
  - BALANCE DISORDER [None]
  - COGNITIVE DISORDER [None]
  - VISION BLURRED [None]
  - MOTOR DYSFUNCTION [None]
  - CONFUSIONAL STATE [None]
  - FEELING ABNORMAL [None]
  - DIZZINESS [None]
